FAERS Safety Report 6474626-8 (Version None)
Quarter: 2009Q4

REPORT INFORMATION
  Report Type: 
  Country: None (occurrence: None)
  Receive Date: 20091204
  Receipt Date: 20091130
  Transmission Date: 20100525
  Serious: Yes (Death, Hospitalization, Other)
  Sender: FDA-Public Use
  Company Number: US-CELGENEUS-163-21880-09102213

PATIENT
  Age: 56 Year
  Sex: Male

DRUGS (23)
  1. REVLIMID [Suspect]
     Route: 048
     Dates: start: 20090825, end: 20090917
  2. REVLIMID [Suspect]
     Route: 048
     Dates: start: 20090918, end: 20091024
  3. CYCLOPHOSPHAMIDE [Concomitant]
     Route: 051
     Dates: start: 20090613, end: 20090704
  4. FLUDARABINE [Concomitant]
     Route: 051
     Dates: start: 20090613, end: 20090704
  5. RITUXAN [Concomitant]
     Route: 051
     Dates: start: 20090613, end: 20090704
  6. ANTI-THYMOCYTE GLOBULIN NOS [Concomitant]
     Route: 051
     Dates: start: 20090613, end: 20090704
  7. IMODIUM [Concomitant]
     Route: 048
     Dates: start: 20090708
  8. IMODIUM [Concomitant]
  9. TRAMADOL HCL [Concomitant]
     Indication: PAIN
     Route: 048
     Dates: start: 20090708
  10. ONDANSETRON [Concomitant]
     Indication: NAUSEA
     Route: 048
     Dates: start: 20090708
  11. ONDANSETRON [Concomitant]
     Indication: VOMITING
  12. BABY ASPIRIN [Concomitant]
     Indication: DRUG USE FOR UNKNOWN INDICATION
     Route: 048
     Dates: start: 20090828
  13. FOLIC ACID [Concomitant]
     Indication: SUPPLEMENTATION THERAPY
     Route: 048
     Dates: start: 20090708
  14. GLUCOVANCE [Concomitant]
     Dosage: 5/500MG
     Route: 048
     Dates: start: 20090419
  15. MAGNESIUM PROTEIN [Concomitant]
     Indication: SUPPLEMENTATION THERAPY
     Route: 048
     Dates: start: 20090710
  16. MEPRON [Concomitant]
     Route: 048
     Dates: start: 20090908
  17. NORVASC [Concomitant]
     Indication: BLOOD PRESSURE
     Route: 048
     Dates: start: 20090810
  18. NYSTATIN [Concomitant]
     Route: 048
     Dates: start: 20090807
  19. FAMOTIDINE [Concomitant]
     Indication: PROPHYLAXIS
     Route: 048
     Dates: start: 20090708
  20. VALTREX [Concomitant]
     Indication: DRUG USE FOR UNKNOWN INDICATION
     Route: 048
     Dates: start: 20090908
  21. VORICONAZOLE [Concomitant]
     Indication: ANTIFUNGAL PROPHYLAXIS
     Route: 048
     Dates: start: 20090708
  22. VITAMIN D [Concomitant]
     Indication: SUPPLEMENTATION THERAPY
     Dosage: 50000 UNITS
     Route: 048
     Dates: start: 20090724
  23. TACROLIMUS [Concomitant]
     Route: 048
     Dates: start: 20090708

REACTIONS (5)
  - ACUTE GRAFT VERSUS HOST DISEASE [None]
  - CARDIAC ARREST [None]
  - PNEUMONIA [None]
  - SEPSIS [None]
  - SYNCOPE [None]
